FAERS Safety Report 8346536-2 (Version None)
Quarter: 2012Q2

REPORT INFORMATION
  Report Type: 
  Country: None (occurrence: None)
  Receive Date: 20120507
  Receipt Date: 20120507
  Transmission Date: 20120825
  Serious: No
  Sender: FDA-Public Use
  Company Number: None

PATIENT
  Sex: Female

DRUGS (1)
  1. STRATTERA [Suspect]
     Indication: ATTENTION DEFICIT/HYPERACTIVITY DISORDER
     Dosage: 60MG 1 DAILY ORAL
     Route: 048
     Dates: start: 20120124, end: 20120127

REACTIONS (3)
  - NAUSEA [None]
  - COLD SWEAT [None]
  - HYPERHIDROSIS [None]
